FAERS Safety Report 6220411-1 (Version None)
Quarter: 2009Q2

REPORT INFORMATION
  Report Type: 
  Country: None (occurrence: None)
  Receive Date: 20090605
  Receipt Date: 20090529
  Transmission Date: 20091009
  Serious: Yes (Hospitalization)
  Sender: FDA-Public Use
  Company Number: CHPA2009US12463

PATIENT
  Age: 44 Year
  Sex: Female
  Weight: 59.9 kg

DRUGS (1)
  1. EXCEDRIN (MIGRAINE) [Suspect]
     Indication: HEADACHE
     Dosage: 2 DF, ORAL
     Route: 048
     Dates: start: 20080101, end: 20080101

REACTIONS (1)
  - GASTRIC HAEMORRHAGE [None]
